FAERS Safety Report 8937885 (Version 1)
Quarter: 2012Q4

REPORT INFORMATION
  Report Type: Spontaneous
  Country: US (occurrence: None)
  Receive Date: 20121128
  Receipt Date: 20121128
  Transmission Date: 20130627
  Serious: No
  Sender: FDA-Public Use
  Company Number: None

PATIENT
  Age: 75 Year
  Sex: Female

DRUGS (1)
  1. SIMVASTATIN [Suspect]
     Indication: HYPERLIPIDEMIA
     Dosage: 20 mg One Daily po
     Route: 048
     Dates: start: 20080301, end: 20121111

REACTIONS (2)
  - Blood cholesterol increased [None]
  - Product quality issue [None]
